FAERS Safety Report 6501029-X (Version None)
Quarter: 2009Q4

REPORT INFORMATION
  Report Type: 
  Country: None (occurrence: None)
  Receive Date: 20091216
  Receipt Date: 20090602
  Transmission Date: 20100525
  Serious: No
  Sender: FDA-Public Use
  Company Number: A0788716A

PATIENT
  Age: 70 Year
  Sex: Female

DRUGS (1)
  1. COMMIT [Suspect]
     Dates: start: 20090512, end: 20090601

REACTIONS (5)
  - OEDEMA MOUTH [None]
  - ORAL DISCOMFORT [None]
  - ORAL MUCOSAL ERUPTION [None]
  - OROPHARYNGEAL BLISTERING [None]
  - STOMATITIS [None]
